FAERS Safety Report 4547331-2 (Version None)
Quarter: 2005Q1

REPORT INFORMATION
  Report Type: 
  Country: None (occurrence: None)
  Receive Date: 20050107
  Receipt Date: 20050105
  Transmission Date: 20050727
  Serious: Yes (Death)
  Sender: FDA-Public Use
  Company Number: DE-BRISTOL-MYERS SQUIBB COMPANY-12814190

PATIENT
  Age: 60 Year
  Sex: Male
  Weight: 61 kg

DRUGS (3)
  1. REYATAZ [Suspect]
     Indication: ACQUIRED IMMUNODEFICIENCY SYNDROME
     Dates: start: 20040330
  2. LAMIVUDINE [Concomitant]
     Dates: start: 20040301
  3. TENOFOVIR [Concomitant]
     Dates: start: 20040301

REACTIONS (1)
  - DEATH [None]
